FAERS Safety Report 5146989-7 (Version None)
Quarter: 2006Q4

REPORT INFORMATION
  Report Type: 
  Country: None (occurrence: None)
  Receive Date: 20061103
  Receipt Date: 20061023
  Transmission Date: 20070319
  Serious: Yes (Hospitalization, Disabling, Other)
  Sender: FDA-Public Use
  Company Number: 2006098995

PATIENT
  Age: 80 Year
  Sex: Male

DRUGS (15)
  1. ZYVOX [Suspect]
     Indication: STAPHYLOCOCCAL INFECTION
     Dosage: 1200 MG, INTRAVENOUS
     Route: 042
     Dates: start: 20060714
  2. ZYVOX [Suspect]
     Indication: STAPHYLOCOCCAL INFECTION
     Dosage: 1200 MG (600 MG, 2 IN 1 D), ORAL
     Route: 048
     Dates: end: 20060821
  3. AMARYL [Concomitant]
  4. BASEN (VOGLIBOSE) [Concomitant]
  5. BIOFERMIN R (STREPTOCOCCUS FAECALIS) [Concomitant]
  6. ASPIRIN [Concomitant]
  7. ALDACTONE [Concomitant]
  8. CARVEDILOL [Concomitant]
  9. LANSOPRAZOLE [Concomitant]
  10. FERROMIA (FERROUS CITRATE) [Concomitant]
  11. PROMAC /JPN/ (POLAPREZINC) [Concomitant]
  12. TRAZODONE HCL [Concomitant]
  13. GLYBURIDE [Concomitant]
  14. ROCEPHIN [Concomitant]
  15. PRODIF (FOSFLUCONAZOLE) [Concomitant]

REACTIONS (2)
  - ANAEMIA [None]
  - HYPOGLYCAEMIA [None]
